FAERS Safety Report 25070408 (Version 1)
Quarter: 2025Q1

REPORT INFORMATION
  Report Type: Spontaneous
  Country: ZA (occurrence: ZA)
  Receive Date: 20250312
  Receipt Date: 20250312
  Transmission Date: 20250409
  Serious: Yes (Life-Threatening, Hospitalization, Other)
  Sender: FRESENIUS KABI
  Company Number: ZA-FreseniusKabi-FK202503724

PATIENT
  Age: 54 Year
  Sex: Female
  Weight: 90 kg

DRUGS (4)
  1. ROCURONIUM BROMIDE [Suspect]
     Active Substance: ROCURONIUM BROMIDE
     Indication: General anaesthesia
     Dates: start: 20250227, end: 20250227
  2. SUFENTA [Concomitant]
     Active Substance: SUFENTANIL CITRATE
     Indication: Product used for unknown indication
  3. PROPOFOL [Concomitant]
     Active Substance: PROPOFOL
     Indication: Product used for unknown indication
  4. KEFZOL [Concomitant]
     Active Substance: CEFAZOLIN SODIUM
     Indication: Product used for unknown indication

REACTIONS (2)
  - Airway complication of anaesthesia [Recovered/Resolved]
  - Cardiac arrest [Recovered/Resolved]
